FAERS Safety Report 8956418 (Version 1)
Quarter: 2012Q4

REPORT INFORMATION
  Report Type: 
  Country: FR (occurrence: FR)
  Receive Date: 20121210
  Receipt Date: 20121210
  Transmission Date: 20130627
  Serious: Yes (Death, Other)
  Sender: FDA-Public Use
  Company Number: FR-ASTRAZENECA-2012SE91915

PATIENT
  Sex: Female

DRUGS (2)
  1. BRILIQUE [Suspect]
     Indication: ACUTE CORONARY SYNDROME
     Route: 048
  2. ANTIVITAMINE K [Concomitant]

REACTIONS (3)
  - Cardiac tamponade [Fatal]
  - Atrial fibrillation [Not Recovered/Not Resolved]
  - Atrioventricular block complete [Not Recovered/Not Resolved]
